FAERS Safety Report 5799520-7 (Version None)
Quarter: 2008Q3

REPORT INFORMATION
  Report Type: 
  Country: None (occurrence: None)
  Receive Date: 20080701
  Receipt Date: 20080701
  Transmission Date: 20090109
  Serious: Yes (Life-Threatening, Hospitalization)
  Sender: FDA-Public Use
  Company Number: None

PATIENT
  Age: 72 Year
  Sex: Female
  Weight: 34.927 kg

DRUGS (1)
  1. CHANTIX [Suspect]
     Indication: SMOKING CESSATION THERAPY
     Dosage: 1MG BID PO  3 WEEKS PRIOR TO ILLNESS
     Route: 048

REACTIONS (4)
  - BRADYCARDIA [None]
  - CEREBRAL HYPOPERFUSION [None]
  - HYPERKALAEMIA [None]
  - HYPOTENSION [None]
